FAERS Safety Report 6013402-7 (Version None)
Quarter: 2008Q4

REPORT INFORMATION
  Report Type: 
  Country: None (occurrence: None)
  Receive Date: 20081218
  Receipt Date: 20081218
  Transmission Date: 20090506
  Serious: Yes (Other)
  Sender: FDA-Public Use
  Company Number: None

PATIENT
  Age: 80 Year
  Sex: Female

DRUGS (3)
  1. ALENDRONATE SODIUM [Suspect]
     Indication: FRACTURE
     Dosage: 1 TAB BY MOUTH ONCE WEEKLY
     Route: 048
     Dates: start: 20080705, end: 20080801
  2. ALENDRONATE SODIUM [Suspect]
     Indication: OSTEOPOROSIS
     Dosage: 1 TAB BY MOUTH ONCE WEEKLY
     Route: 048
     Dates: start: 20080705, end: 20080801
  3. ALENDRONATE SODIUM [Suspect]
     Indication: PROPHYLAXIS
     Dosage: 1 TAB BY MOUTH ONCE WEEKLY
     Route: 048
     Dates: start: 20080705, end: 20080801

REACTIONS (2)
  - PHARYNGEAL HAEMORRHAGE [None]
  - PRODUCT QUALITY ISSUE [None]
